FAERS Safety Report 5464420-9 (Version None)
Quarter: 2007Q3

REPORT INFORMATION
  Report Type: 
  Country: None (occurrence: None)
  Receive Date: 20070921
  Receipt Date: 20070912
  Transmission Date: 20080115
  Serious: Yes (Hospitalization)
  Sender: FDA-Public Use
  Company Number: FR-JNJFOC-20070903820

PATIENT
  Sex: Male

DRUGS (3)
  1. TOPALGIC [Suspect]
     Indication: PAIN
     Route: 048
     Dates: start: 20070710, end: 20070714
  2. ACETAMINOPHEN [Suspect]
     Indication: PAIN
     Route: 048
  3. INNOHEP [Suspect]
     Indication: PROPHYLAXIS
     Route: 058

REACTIONS (1)
  - THROMBOCYTOPENIA [None]
